FAERS Safety Report 5527614-X (Version None)
Quarter: 2007Q4

REPORT INFORMATION
  Report Type: 
  Country: None (occurrence: None)
  Receive Date: 20071123
  Receipt Date: 20071103
  Transmission Date: 20080405
  Serious: Yes (Life-Threatening)
  Sender: FDA-Public Use
  Company Number: ADE2007-0035

PATIENT
  Age: 73 Year
  Sex: Female

DRUGS (2)
  1. METFORMIN HYDROCHLORIDE [Suspect]
     Indication: TYPE 2 DIABETES MELLITUS
  2. UNSPECIFIED ANGIOTENSIN II RECEPTOR BLOCKER [Concomitant]

REACTIONS (6)
  - DIARRHOEA [None]
  - HAEMODIALYSIS [None]
  - HYPOTENSION [None]
  - LACTIC ACIDOSIS [None]
  - LETHARGY [None]
  - RENAL FAILURE ACUTE [None]
